FAERS Safety Report 6087931-4 (Version None)
Quarter: 2009Q1

REPORT INFORMATION
  Report Type: 
  Country: None (occurrence: None)
  Receive Date: 20090218
  Receipt Date: 20090218
  Transmission Date: 20090719
  Serious: Yes (Life-Threatening, Hospitalization)
  Sender: FDA-Public Use
  Company Number: None

PATIENT
  Age: 82 Year
  Sex: Female
  Weight: 58.9676 kg

DRUGS (1)
  1. TREXIMET [Suspect]
     Indication: MIGRAINE
     Dosage: 2 TABLETS ONE TIME PO
     Route: 048
     Dates: start: 20081030, end: 20081104

REACTIONS (4)
  - CONVULSION [None]
  - FALL [None]
  - RESPIRATORY ARREST [None]
  - RIB FRACTURE [None]
